FAERS Safety Report 18101679 (Version 1)
Quarter: 2020Q3

REPORT INFORMATION
  Report Type: Spontaneous
  Country: BR (occurrence: BR)
  Receive Date: 20200801
  Receipt Date: 20200801
  Transmission Date: 20201103
  Serious: Yes (Other)
  Sender: FDA-Public Use
  Company Number: BR-TAKEDA-2020TUS033020

PATIENT
  Age: 33 Year
  Sex: Male

DRUGS (1)
  1. ENTYVIO [Suspect]
     Active Substance: VEDOLIZUMAB
     Indication: CROHN^S DISEASE
     Dosage: UNK
     Route: 065
     Dates: start: 201808

REACTIONS (7)
  - Abdominal pain [Unknown]
  - Abdominal distension [Unknown]
  - Abnormal faeces [Unknown]
  - Gastric mucosal hypertrophy [Unknown]
  - Gastrointestinal surgery [Unknown]
  - Faecal calprotectin abnormal [Unknown]
  - Gastrointestinal inflammation [Unknown]

NARRATIVE: CASE EVENT DATE: 201811
